FAERS Safety Report 4759198-8 (Version None)
Quarter: 2005Q3

REPORT INFORMATION
  Report Type: 
  Country: None (occurrence: None)
  Receive Date: 20050831
  Receipt Date: 20050811
  Transmission Date: 20060218
  Serious: Yes (Other)
  Sender: FDA-Public Use
  Company Number: GBS050818155

PATIENT
  Age: 80 Year
  Sex: Female
  Weight: 55 kg

DRUGS (1)
  1. FORTEO [Suspect]
     Indication: OSTEOPOROSIS
     Dosage: 20 UG
     Dates: start: 20050809, end: 20050810

REACTIONS (5)
  - ABDOMINAL PAIN [None]
  - DISORIENTATION [None]
  - HEADACHE [None]
  - NAUSEA [None]
  - RETCHING [None]
